FAERS Safety Report 25746433 (Version 1)
Quarter: 2025Q3

REPORT INFORMATION
  Report Type: Spontaneous
  Country: US (occurrence: US)
  Receive Date: 20250901
  Receipt Date: 20250901
  Transmission Date: 20251021
  Serious: No
  Sender: ANI
  Company Number: US-ANIPHARMA-024294

PATIENT
  Sex: Female

DRUGS (1)
  1. OPIUM TINCTURE [Suspect]
     Active Substance: MORPHINE
     Indication: Enteritis infectious
     Route: 048

REACTIONS (3)
  - Product odour abnormal [Unknown]
  - Product taste abnormal [Unknown]
  - Poor quality product administered [Unknown]
